FAERS Safety Report 7210366-5 (Version None)
Quarter: 2011Q1

REPORT INFORMATION
  Report Type: 
  Country: None (occurrence: None)
  Receive Date: 20110105
  Receipt Date: 20101222
  Transmission Date: 20110831
  Serious: Yes (Hospitalization, Disabling)
  Sender: FDA-Public Use
  Company Number: PHHY2010AU87913

PATIENT
  Sex: Male
  Weight: 64 kg

DRUGS (5)
  1. TAXOTERE [Concomitant]
     Indication: PROSTATE CANCER
     Dosage: 90 MG, UNK
     Route: 042
     Dates: start: 20100309, end: 20100625
  2. ZOLADEX [Concomitant]
     Indication: PROSTATE CANCER
     Dosage: 10.8 MG, UNK
     Dates: start: 20090414
  3. ZOCOR [Concomitant]
     Dosage: 10 MG, QN
  4. ATACAND [Concomitant]
     Dosage: 16 MG,EVERY MORNING
  5. ZOMETA [Suspect]
     Indication: METASTASES TO BONE
     Dosage: 4 MG, QMO
     Route: 042
     Dates: start: 20080414, end: 20090925

REACTIONS (3)
  - OSTEOMYELITIS [None]
  - OSTEONECROSIS OF JAW [None]
  - ORAL PAIN [None]
